FAERS Safety Report 8875589 (Version 1)
Quarter: 2012Q4

REPORT INFORMATION
  Report Type: 
  Country: US (occurrence: US)
  Receive Date: 20121030
  Receipt Date: 20121030
  Transmission Date: 20130627
  Serious: No
  Sender: FDA-Public Use
  Company Number: US-ABBOTT-12P-163-0963697-00

PATIENT
  Age: 49 Year
  Sex: Male
  Weight: 63.56 kg

DRUGS (1)
  1. KALETRA SOFT GELATIN CAPSULES [Suspect]
     Indication: PRODUCT USED FOR UNKNOWN INDICATION
     Dosage: 3 caps 2 times a day
     Dates: start: 2002, end: 201205

REACTIONS (2)
  - Erectile dysfunction [Not Recovered/Not Resolved]
  - Premature ejaculation [Not Recovered/Not Resolved]
